FAERS Safety Report 5041024-3 (Version None)
Quarter: 2006Q2

REPORT INFORMATION
  Report Type: 
  Country: None (occurrence: None)
  Receive Date: 20060601
  Receipt Date: 20060307
  Transmission Date: 20061013
  Serious: No
  Sender: FDA-Public Use
  Company Number: 2006PV009830

PATIENT
  Age: 53 Year
  Sex: Male

DRUGS (4)
  1. BYETTA [Suspect]
     Indication: DIABETES MELLITUS NON-INSULIN-DEPENDENT
     Dosage: SC
     Route: 058
     Dates: start: 20060201
  2. GLUCOPHAGE [Concomitant]
  3. SHORT ACTING INSULIN [Concomitant]
  4. LONG ACTING INSULIN [Concomitant]

REACTIONS (6)
  - BRONCHITIS [None]
  - DYSPEPSIA [None]
  - FATIGUE [None]
  - GASTROENTERITIS VIRAL [None]
  - PAIN [None]
  - STOMACH DISCOMFORT [None]
